FAERS Safety Report 8311299-3 (Version None)
Quarter: 2012Q2

REPORT INFORMATION
  Report Type: 
  Country: None (occurrence: None)
  Receive Date: 20120425
  Receipt Date: 20120416
  Transmission Date: 20120825
  Serious: Yes (Other)
  Sender: FDA-Public Use
  Company Number: CA-GLAXOSMITHKLINE-A0973890A

PATIENT
  Sex: Female

DRUGS (7)
  1. MAXERAN [Concomitant]
  2. XELODA [Suspect]
     Indication: PRODUCT USED FOR UNKNOWN INDICATION
     Route: 065
  3. SLOW-K [Concomitant]
  4. VITAMIN B COMPLEX CAP [Concomitant]
  5. TYKERB [Suspect]
     Indication: BREAST CANCER METASTATIC
     Dosage: 1250MG PER DAY
     Route: 048
     Dates: start: 20110617
  6. ZOFRAN [Concomitant]
  7. LOMOTIL [Concomitant]

REACTIONS (2)
  - SKIN CHAPPED [None]
  - PALMAR-PLANTAR ERYTHRODYSAESTHESIA SYNDROME [None]
